FAERS Safety Report 4285784-8 (Version None)
Quarter: 2004Q1

REPORT INFORMATION
  Report Type: 
  Country: None (occurrence: None)
  Receive Date: 20040203
  Receipt Date: 20040126
  Transmission Date: 20041129
  Serious: Yes (Death, Hospitalization)
  Sender: FDA-Public Use
  Company Number: STA-AE-03-MTX-093

PATIENT
  Age: 79 Year
  Sex: Female

DRUGS (7)
  1. METHOTREXATE [Suspect]
     Indication: RHEUMATOID ARTHRITIS
     Dosage: 5 MG 2X PER 1 DAY ORAL
     Route: 048
     Dates: start: 20031009, end: 20031019
  2. LUDIOMIL [Concomitant]
  3. LOVENOX [Concomitant]
  4. FENOFIBRATE [Concomitant]
  5. DITROPAN [Concomitant]
  6. FORLAX (MACROGOL) [Concomitant]
  7. ACETAMINOPHEN [Concomitant]

REACTIONS (7)
  - ACCIDENTAL OVERDOSE [None]
  - APHTHOUS STOMATITIS [None]
  - BODY TEMPERATURE INCREASED [None]
  - MEDICATION ERROR [None]
  - PANCYTOPENIA [None]
  - PYREXIA [None]
  - VIRAL INFECTION [None]
